FAERS Safety Report 5034771-0 (Version None)
Quarter: 2006Q2

REPORT INFORMATION
  Report Type: 
  Country: None (occurrence: None)
  Receive Date: 20060502
  Receipt Date: 20060308
  Transmission Date: 20061013
  Serious: No
  Sender: FDA-Public Use
  Company Number: 251104

PATIENT
  Age: 75 Year
  Sex: Female
  Weight: 91.6 kg

DRUGS (15)
  1. NOVOLOG [Suspect]
     Indication: INSULIN-REQUIRING TYPE II DIABETES MELLITUS
     Dosage: SEE IMAGE
     Route: 058
     Dates: start: 20050101
  2. NOVOLOG [Suspect]
     Indication: INSULIN-REQUIRING TYPE II DIABETES MELLITUS
     Dosage: SEE IMAGE
     Route: 058
     Dates: start: 20050101
  3. LEVEMIR(INSULIN DETEMIR) SOLUTION FOR INJECTION, .0024MOL/L [Suspect]
     Indication: INSULIN-REQUIRING TYPE II DIABETES MELLITUS
     Dosage: 75 IU, QD, SUBCUTANEOUS
     Route: 058
     Dates: start: 20060208
  4. BD ULTRA FINE NEEDLES [Concomitant]
  5. VITIRON (VITAMINS NOS, MINERALS NOS, METHIONINE, CHOLINE BITARTRATE, I [Concomitant]
  6. PRILOSEC [Concomitant]
  7. HYDROCHLOROTHIAZIDE [Concomitant]
  8. LEVOXYL [Concomitant]
  9. BUSPAR [Concomitant]
  10. ALTACE [Concomitant]
  11. ALDACTONE [Concomitant]
  12. EFFEXOR (VENLAFAXINE HYDRCHLORIDE) [Concomitant]
  13. MIRADEX (NAPHAZOLINE, DEXAMETHASONE SODIUM PHOSPHATE) [Concomitant]
  14. CLONIDINE [Concomitant]
  15. ARIMIDEX [Concomitant]

REACTIONS (2)
  - BLOOD GLUCOSE DECREASED [None]
  - MEDICATION ERROR [None]
